FAERS Safety Report 7284005-1 (Version None)
Quarter: 2011Q1

REPORT INFORMATION
  Report Type: 
  Country: None (occurrence: None)
  Receive Date: 20110209
  Receipt Date: 20110208
  Transmission Date: 20110831
  Serious: Yes (Death)
  Sender: FDA-Public Use
  Company Number: US-ABBOTT-11P-163-0703276-00

PATIENT
  Sex: Female
  Weight: 95.794 kg

DRUGS (5)
  1. MERCAPTOPURINE [Concomitant]
     Indication: CROHN'S DISEASE
     Dosage: 2 TABS
     Dates: end: 20100801
  2. LISINOPRIL [Concomitant]
     Indication: HYPERTENSION
     Dates: end: 20100801
  3. LIBRAX [Concomitant]
     Indication: IRRITABLE BOWEL SYNDROME
     Dosage: 2.5/5MG THREE TIMES A DAY
     Dates: end: 20100801
  4. HUMIRA [Suspect]
     Indication: CROHN'S DISEASE
     Route: 058
     Dates: start: 20100701, end: 20100801
  5. TRINESSA [Concomitant]
     Indication: CONTRACEPTION
     Dates: end: 20100801

REACTIONS (2)
  - STAB WOUND [None]
  - HOMICIDE [None]
